FAERS Safety Report 6565822-X (Version None)
Quarter: 2010Q1

REPORT INFORMATION
  Report Type: 
  Country: None (occurrence: None)
  Receive Date: 20100201
  Receipt Date: 20090421
  Transmission Date: 20100710
  Serious: No
  Sender: FDA-Public Use
  Company Number: US-ABBOTT-09P-163-0569591-00

PATIENT
  Sex: Male
  Weight: 72.64 kg

DRUGS (2)
  1. LUPRON DEPOT [Suspect]
     Indication: PROSTATE CANCER
     Dates: start: 20090309
  2. OTHER MEDICATION FOR RENAL FAILURE [Concomitant]
     Indication: RENAL FAILURE
     Route: 065

REACTIONS (1)
  - PROSTATIC SPECIFIC ANTIGEN INCREASED [None]
